FAERS Safety Report 24626120 (Version 1)
Quarter: 2024Q4

REPORT INFORMATION
  Report Type: Spontaneous
  Country: DE (occurrence: DE)
  Receive Date: 20241115
  Receipt Date: 20241115
  Transmission Date: 20250114
  Serious: Yes (Hospitalization, Other)
  Sender: ALEXION PHARMACEUTICALS
  Company Number: DE-ASTRAZENECA-202411GLO011208DE

PATIENT
  Age: 21 Year
  Weight: 60 kg

DRUGS (3)
  1. QUETIAPINE FUMARATE [Suspect]
     Active Substance: QUETIAPINE FUMARATE
     Indication: Mood altered
     Dosage: UNK
  2. QUETIAPINE FUMARATE [Suspect]
     Active Substance: QUETIAPINE FUMARATE
     Dosage: UNK
  3. MIRTAZAPINE [Concomitant]
     Active Substance: MIRTAZAPINE

REACTIONS (8)
  - Impulse-control disorder [Recovered/Resolved]
  - Suicide attempt [Unknown]
  - Intentional self-injury [Unknown]
  - Restless legs syndrome [Recovered/Resolved]
  - Depression [Recovered/Resolved]
  - Tension [Recovered/Resolved]
  - Emotional disorder [Recovered/Resolved]
  - Dissociation [Recovered/Resolved]
